FAERS Safety Report 25330759 (Version 2)
Quarter: 2025Q2

REPORT INFORMATION
  Report Type: Spontaneous
  Country: US (occurrence: US)
  Receive Date: 20250519
  Receipt Date: 20250520
  Transmission Date: 20250717
  Serious: No
  Sender: PFIZER
  Company Number: US-PFIZER INC-PV202500058637

PATIENT
  Sex: Male

DRUGS (1)
  1. NURTEC ODT [Suspect]
     Active Substance: RIMEGEPANT SULFATE
     Indication: Migraine

REACTIONS (4)
  - Vomiting projectile [Unknown]
  - Diaphragmatic hernia [Unknown]
  - Drug hypersensitivity [Unknown]
  - Hyperaemia [Unknown]
